FAERS Safety Report 4994481-2 (Version None)
Quarter: 2006Q2

REPORT INFORMATION
  Report Type: 
  Country: None (occurrence: None)
  Receive Date: 20060505
  Receipt Date: 20051011
  Transmission Date: 20061013
  Serious: Yes (Hospitalization)
  Sender: FDA-Public Use
  Company Number: US-MERCK-0510USA06616

PATIENT
  Age: 69 Year
  Sex: Male

DRUGS (2)
  1. VIOXX [Suspect]
     Indication: OSTEOARTHRITIS
     Route: 065
     Dates: start: 20010323, end: 20040724
  2. VIOXX [Suspect]
     Route: 048
     Dates: start: 20010419, end: 20010401

REACTIONS (29)
  - ABDOMINAL PAIN UPPER [None]
  - AFFECT LABILITY [None]
  - ANXIETY [None]
  - AORTIC VALVE SCLEROSIS [None]
  - ARTERIOSCLEROSIS [None]
  - ARTHRALGIA [None]
  - CARDIOMYOPATHY [None]
  - CAROTID ARTERY STENOSIS [None]
  - CEREBRAL ATROPHY [None]
  - CEREBROVASCULAR ACCIDENT [None]
  - CONSTIPATION [None]
  - CONVULSION [None]
  - DIASTOLIC DYSFUNCTION [None]
  - DIZZINESS [None]
  - DIZZINESS POSTURAL [None]
  - HAEMATURIA [None]
  - HEMIPARESIS [None]
  - HOT FLUSH [None]
  - HYPERTENSION [None]
  - HYPERTRIGLYCERIDAEMIA [None]
  - INSOMNIA [None]
  - LABILE HYPERTENSION [None]
  - LETHARGY [None]
  - MUSCLE SPASTICITY [None]
  - OBESITY [None]
  - SLEEP DISORDER [None]
  - TRIGGER FINGER [None]
  - VENTRICULAR HYPERTROPHY [None]
  - VENTRICULAR TACHYCARDIA [None]
